FAERS Safety Report 15877029 (Version 3)
Quarter: 2019Q2

REPORT INFORMATION
  Report Type: Report from Study
  Country: None (occurrence: US)
  Receive Date: 20190128
  Receipt Date: 20190607
  Transmission Date: 20190711
  Serious: Yes (Hospitalization, Other)
  Sender: FDA-Public Use
  Company Number: US-ABBVIE-19K-163-2638179-00

PATIENT
  Age: 67 Year
  Sex: Female
  Weight: 50.85 kg

DRUGS (5)
  1. NASONEX [Concomitant]
     Active Substance: MOMETASONE FUROATE
     Indication: HYPERSENSITIVITY
  2. ADVAIR HFA [Concomitant]
     Active Substance: FLUTICASONE PROPIONATE\SALMETEROL XINAFOATE
     Indication: ASTHMA
  3. TYMLOS [Suspect]
     Active Substance: ABALOPARATIDE
     Indication: OSTEOPOROSIS POSTMENOPAUSAL
     Route: 065
     Dates: start: 20180621, end: 20180628
  4. HUMIRA [Suspect]
     Active Substance: ADALIMUMAB
     Indication: CROHN^S DISEASE
     Route: 058
     Dates: start: 20180129, end: 20181008
  5. PREDNISONE. [Concomitant]
     Active Substance: PREDNISONE
     Indication: CROHN^S DISEASE

REACTIONS (21)
  - General symptom [Unknown]
  - Pruritus [Recovered/Resolved]
  - Rash [Recovered/Resolved]
  - Pain [Recovered/Resolved]
  - Abdominal pain [Recovered/Resolved]
  - Adrenal neoplasm [Not Recovered/Not Resolved]
  - Cholangitis sclerosing [Not Recovered/Not Resolved]
  - Fatigue [Recovered/Resolved]
  - Hepatic failure [Unknown]
  - Dizziness [Recovered/Resolved]
  - Skin discolouration [Recovered/Resolved]
  - Rash [Recovered/Resolved]
  - Mental impairment [Recovered/Resolved]
  - Photopsia [Recovered/Resolved]
  - Pruritus [Recovered/Resolved]
  - Discomfort [Recovered/Resolved]
  - Hepatic enzyme increased [Recovered/Resolved]
  - Skin discolouration [Unknown]
  - Arthralgia [Recovered/Resolved]
  - Injection site pain [Recovered/Resolved]
  - Pyrexia [Recovered/Resolved]

NARRATIVE: CASE EVENT DATE: 201802
